FAERS Safety Report 4966158-0 (Version None)
Quarter: 2006Q2

REPORT INFORMATION
  Report Type: 
  Country: None (occurrence: None)
  Receive Date: 20060407
  Receipt Date: 20050621
  Transmission Date: 20061013
  Serious: Yes (Hospitalization, Disabling)
  Sender: FDA-Public Use
  Company Number: US-ROCHE-408637

PATIENT
  Age: 21 Year
  Sex: Male
  Weight: 99.8 kg

DRUGS (5)
  1. ACCUTANE [Suspect]
     Indication: ACNE
     Route: 048
     Dates: start: 19950130, end: 19950615
  2. ACCUTANE [Suspect]
     Route: 048
     Dates: start: 19980915, end: 19981115
  3. ACCUTANE [Suspect]
     Route: 048
     Dates: start: 19980831, end: 19981215
  4. ACCUTANE [Suspect]
     Route: 048
     Dates: start: 19981215, end: 19990104
  5. ACCUTANE [Suspect]
     Route: 048
     Dates: start: 19990104, end: 19990215

REACTIONS (30)
  - ALANINE AMINOTRANSFERASE INCREASED [None]
  - ANAEMIA [None]
  - ANHEDONIA [None]
  - ANXIETY [None]
  - ARTHRALGIA [None]
  - BLOOD POTASSIUM DECREASED [None]
  - BONE GRAFT [None]
  - COLITIS [None]
  - COLITIS ULCERATIVE [None]
  - DRUG LEVEL BELOW THERAPEUTIC [None]
  - DRY SKIN [None]
  - DYSPEPSIA [None]
  - FRACTURE [None]
  - GASTROINTESTINAL DISORDER [None]
  - GASTROOESOPHAGEAL REFLUX DISEASE [None]
  - GIARDIASIS [None]
  - HAEMATOCRIT DECREASED [None]
  - HEADACHE [None]
  - HYPOALBUMINAEMIA [None]
  - INFLAMMATORY BOWEL DISEASE [None]
  - IRRITABLE BOWEL SYNDROME [None]
  - LIPIDS INCREASED [None]
  - PAIN [None]
  - PLATELET COUNT INCREASED [None]
  - PROCTITIS [None]
  - PSEUDOPOLYP [None]
  - RADIUS FRACTURE [None]
  - RECTAL HAEMORRHAGE [None]
  - ROAD TRAFFIC ACCIDENT [None]
  - ULNA FRACTURE [None]
